FAERS Safety Report 6819943-4 (Version None)
Quarter: 2010Q3

REPORT INFORMATION
  Report Type: 
  Country: None (occurrence: None)
  Receive Date: 20100707
  Receipt Date: 20100629
  Transmission Date: 20110219
  Serious: Yes (Death)
  Sender: FDA-Public Use
  Company Number: US-GILEAD-2010-0030156

PATIENT
  Sex: Female
  Weight: 68.1 kg

DRUGS (12)
  1. LETAIRIS [Suspect]
     Indication: PULMONARY ARTERIAL HYPERTENSION
     Route: 048
     Dates: start: 20090330
  2. REVATIO [Concomitant]
  3. COUMADIN [Concomitant]
  4. ASPIRIN [Concomitant]
  5. LASIX [Concomitant]
  6. MINOCYCLINE [Concomitant]
  7. ZITHROMAX [Concomitant]
  8. NEXIUM [Concomitant]
  9. SYNTHROID [Concomitant]
  10. POTASSIUM CHLORIDE [Concomitant]
  11. MAGNESIUM OXIDE [Concomitant]
  12. CALCIUM +D [Concomitant]

REACTIONS (1)
  - DEATH [None]
